FAERS Safety Report 5695696-0 (Version None)
Quarter: 2008Q2

REPORT INFORMATION
  Report Type: 
  Country: None (occurrence: None)
  Receive Date: 20080407
  Receipt Date: 20080325
  Transmission Date: 20081010
  Serious: No
  Sender: FDA-Public Use
  Company Number: CN-ELI_LILLY_AND_COMPANY-CN200804000009

PATIENT
  Age: 88 Year
  Sex: Female

DRUGS (2)
  1. ZYPREXA [Suspect]
     Indication: DELIRIUM
     Dosage: 2.5 MG, DAILY (1/D)
     Route: 048
     Dates: start: 20080301
  2. ZYPREXA [Suspect]
     Dosage: 5 MG, DAILY (1/D)
     Route: 048
     Dates: start: 20080301

REACTIONS (4)
  - ABNORMAL DREAMS [None]
  - ANXIETY [None]
  - BLOOD URINE PRESENT [None]
  - DRUG INEFFECTIVE [None]
